FAERS Safety Report 10576930 (Version 1)
Quarter: 2014Q4

REPORT INFORMATION
  Report Type: Spontaneous
  Country: US (occurrence: US)
  Receive Date: 20141111
  Receipt Date: 20141111
  Transmission Date: 20150529
  Serious: No
  Sender: FDA-Public Use
  Company Number: US-PFIZER INC-2014309792

PATIENT
  Age: 36 Year
  Sex: Female

DRUGS (1)
  1. NEURONTIN [Suspect]
     Active Substance: GABAPENTIN
     Indication: MULTIPLE SCLEROSIS
     Dosage: 25 MG, UNK
     Dates: start: 2005

REACTIONS (5)
  - Product use issue [Unknown]
  - Fatigue [Unknown]
  - Fibromyalgia [Unknown]
  - Somnolence [Unknown]
  - Feeling abnormal [Unknown]
